FAERS Safety Report 10818420 (Version 2)
Quarter: 2015Q1

REPORT INFORMATION
  Report Type: Spontaneous
  Country: GB (occurrence: GB)
  Receive Date: 20150218
  Receipt Date: 20150331
  Transmission Date: 20150721
  Serious: Yes (Hospitalization, Other)
  Sender: FDA-Public Use
  Company Number: GB-GLAXOSMITHKLINE-GB2015GSK012216

PATIENT
  Age: 72 Year
  Sex: Female
  Weight: 104 kg

DRUGS (17)
  1. ENOXAPARIN [Concomitant]
     Active Substance: ENOXAPARIN
     Dosage: 40 MG, QD
     Route: 058
  2. GABAPENTIN. [Concomitant]
     Active Substance: GABAPENTIN
     Dosage: 600 MG, BID
  3. LANTUS [Concomitant]
     Active Substance: INSULIN GLARGINE
     Dosage: UNK
  4. PARACETAMOL [Concomitant]
     Active Substance: ACETAMINOPHEN
     Dosage: 1 G, QID
  5. RISPERIDONE. [Concomitant]
     Active Substance: RISPERIDONE
     Dosage: 1 MG, QD
     Dates: start: 20150110
  6. TRIMETHOPRIN [Concomitant]
     Dosage: 200 MG, BID
     Dates: start: 20150124, end: 20150127
  7. ZYBAN [Suspect]
     Active Substance: BUPROPION HYDROCHLORIDE
     Indication: EX-TOBACCO USER
     Dosage: 150 MG, BID
     Route: 048
     Dates: start: 201410, end: 20150125
  8. HUMALOG [Concomitant]
     Active Substance: INSULIN LISPRO
     Dosage: UNK
  9. LEVOTHYROXIN [Concomitant]
     Active Substance: LEVOTHYROXINE
     Dosage: 125 UNK, QD
  10. OMEPRAZOLE. [Concomitant]
     Active Substance: OMEPRAZOLE
     Dosage: 20 MG, QD
  11. METOPROLOL [Concomitant]
     Active Substance: METOPROLOL
     Dosage: 50 MG, QD
  12. ATORVASTATIN [Concomitant]
     Active Substance: ATORVASTATIN
     Dosage: 10 MG, QD
  13. FENOFIBRATE. [Concomitant]
     Active Substance: FENOFIBRATE
     Dosage: 200 MG, Z
  14. RISPERIDONE. [Concomitant]
     Active Substance: RISPERIDONE
     Dosage: 4 MG, QD
  15. VENLAFAXINE [Concomitant]
     Active Substance: VENLAFAXINE HYDROCHLORIDE
     Dosage: 300 MG, QD
  16. ISMO ISOSORBIDE MONONITRATE [Concomitant]
     Dosage: 25 MG, UNK
     Dates: start: 20150125, end: 20150127
  17. GLUCAGON CHLORIDE [Concomitant]
     Dosage: 1 MG, SINGLE
     Dates: start: 20150128, end: 20150128

REACTIONS (8)
  - Seizure [Recovered/Resolved]
  - Withdrawal syndrome [Unknown]
  - Fall [Unknown]
  - Feeling abnormal [Unknown]
  - Head injury [Unknown]
  - Hypoglycaemia [Unknown]
  - Cerebrovascular accident [Unknown]
  - Palpitations [Unknown]

NARRATIVE: CASE EVENT DATE: 201501
